FAERS Safety Report 6699027-9 (Version None)
Quarter: 2010Q2

REPORT INFORMATION
  Report Type: 
  Country: None (occurrence: None)
  Receive Date: 20100427
  Receipt Date: 20100420
  Transmission Date: 20101027
  Serious: Yes (Hospitalization)
  Sender: FDA-Public Use
  Company Number: FR-BRISTOL-MYERS SQUIBB COMPANY-14961734

PATIENT
  Age: 73 Year
  Sex: Female

DRUGS (4)
  1. CARBIDOPA + LEVODOPA [Suspect]
     Indication: PARKINSON'S DISEASE
     Route: 048
     Dates: start: 19910101
  2. PARLODEL [Suspect]
     Indication: PARKINSON'S DISEASE
     Dosage: 1991-2007 UNK - APR09
     Route: 048
     Dates: start: 19910101, end: 20090401
  3. SELEGILINE HCL [Suspect]
     Dates: start: 19910101
  4. NEO-MERCAZOLE TAB [Suspect]
     Indication: HYPERTHYROIDISM
     Dosage: 2000-APR09 UNK-CONT
     Route: 065
     Dates: start: 20000101

REACTIONS (2)
  - DYSPNOEA [None]
  - HAEMOTHORAX [None]
